FAERS Safety Report 9170297 (Version 1)
Quarter: 2013Q1

REPORT INFORMATION
  Report Type: Spontaneous
  Country: US (occurrence: None)
  Receive Date: 20130307
  Receipt Date: 20130307
  Transmission Date: 20140127
  Serious: Yes (Other)
  Sender: FDA-Public Use
  Company Number: SYM-2013-01000

PATIENT
  Sex: Male

DRUGS (2)
  1. XENAZINE (TETRABENAZINE) (TABLETS) (TETRABENAZINE) [Suspect]
     Indication: DYSKINESIA
     Route: 048
     Dates: start: 20110228
  2. RESERPINE [Suspect]
     Indication: TARDIVE DYSKINESIA

REACTIONS (2)
  - Hypertension [None]
  - Orthostatic hypotension [None]
